FAERS Safety Report 5493049-1 (Version None)
Quarter: 2007Q4

REPORT INFORMATION
  Report Type: 
  Country: None (occurrence: None)
  Receive Date: 20071017
  Receipt Date: 20071009
  Transmission Date: 20080405
  Serious: Yes (Other)
  Sender: FDA-Public Use
  Company Number: CHPA2007US10606

PATIENT
  Age: 33 Year
  Sex: Female
  Weight: 59 kg

DRUGS (1)
  1. EXCEDRIN (MIGRAINE) [Suspect]
     Indication: MIGRAINE
     Dosage: 2DF, ONCE/SINGLE; ORAL
     Route: 048
     Dates: start: 20071008, end: 20071008

REACTIONS (11)
  - ERYTHEMA [None]
  - HEART RATE IRREGULAR [None]
  - HYPOAESTHESIA [None]
  - LOCAL SWELLING [None]
  - OEDEMA PERIPHERAL [None]
  - PALLOR [None]
  - PRESYNCOPE [None]
  - RASH MACULAR [None]
  - SWELLING [None]
  - SWELLING FACE [None]
  - TREMOR [None]
